FAERS Safety Report 21347287 (Version 1)
Quarter: 2022Q3

REPORT INFORMATION
  Report Type: Report from Study
  Country: AU (occurrence: AU)
  Receive Date: 20220919
  Receipt Date: 20220919
  Transmission Date: 20221026
  Serious: Yes (Other)
  Sender: FDA-Public Use
  Company Number: AU-NOVARTISPH-NVSC2020AU132795

PATIENT
  Sex: Male

DRUGS (7)
  1. IMATINIB [Suspect]
     Active Substance: IMATINIB
     Indication: Product used for unknown indication
     Dosage: 400 MG, QD
     Route: 065
     Dates: start: 20200403
  2. IMATINIB [Suspect]
     Active Substance: IMATINIB
     Dosage: 100 MG, QD
     Route: 065
     Dates: end: 20200611
  3. NILOTINIB [Suspect]
     Active Substance: NILOTINIB
     Indication: Product used for unknown indication
     Dosage: 300 MG, BID
     Route: 065
     Dates: start: 20200205
  4. NILOTINIB [Suspect]
     Active Substance: NILOTINIB
     Dosage: 150 MG, BID
     Route: 065
     Dates: end: 20200402
  5. DASATINIB [Suspect]
     Active Substance: DASATINIB
     Indication: Product used for unknown indication
     Dosage: 100 MG, QD
     Route: 065
     Dates: start: 20191030
  6. DASATINIB [Suspect]
     Active Substance: DASATINIB
     Dosage: 50 MG, QD
     Route: 065
  7. DASATINIB [Suspect]
     Active Substance: DASATINIB
     Dosage: 20 MG, QD
     Route: 065
     Dates: end: 20200622

REACTIONS (4)
  - Nephropathy toxic [Unknown]
  - Blood creatinine increased [Unknown]
  - Renal tubular necrosis [Unknown]
  - Drug intolerance [Unknown]
